FAERS Safety Report 7261113-2 (Version None)
Quarter: 2011Q1

REPORT INFORMATION
  Report Type: 
  Country: None (occurrence: None)
  Receive Date: 20110130
  Receipt Date: 20101229
  Transmission Date: 20110831
  Serious: No
  Sender: FDA-Public Use
  Company Number: US-ABBOTT-10P-163-0694386-00

PATIENT
  Age: 63 Year
  Sex: Female

DRUGS (6)
  1. HUMIRA [Suspect]
     Indication: RHEUMATOID ARTHRITIS
     Dates: start: 20081201
  2. PRILOSEC [Concomitant]
     Indication: GASTRIC DISORDER
  3. CALCIUM [Concomitant]
     Indication: MINERAL SUPPLEMENTATION
  4. MTX [Concomitant]
     Indication: RHEUMATOID ARTHRITIS
  5. METFORMIN [Concomitant]
     Indication: DIABETES MELLITUS
  6. SIMVASTATIN [Concomitant]
     Indication: BLOOD CHOLESTEROL INCREASED

REACTIONS (2)
  - INJECTION SITE ERYTHEMA [None]
  - INJECTION SITE RASH [None]
